FAERS Safety Report 5208306-3 (Version None)
Quarter: 2007Q1

REPORT INFORMATION
  Report Type: 
  Country: None (occurrence: None)
  Receive Date: 20070110
  Receipt Date: 20070110
  Transmission Date: 20070707
  Serious: No
  Sender: FDA-Public Use
  Company Number: None

PATIENT
  Sex: Female

DRUGS (1)
  1. ARAVA [Suspect]
     Indication: ARTHROPATHY
     Dosage: 20 MG DAILY P.O.
     Route: 048
     Dates: start: 20050901, end: 20051201

REACTIONS (5)
  - ARTHRITIS [None]
  - COLITIS [None]
  - DIARRHOEA [None]
  - GASTROINTESTINAL DISORDER [None]
  - PHARMACEUTICAL PRODUCT COMPLAINT [None]
